FAERS Safety Report 17729262 (Version 2)
Quarter: 2020Q2

REPORT INFORMATION
  Report Type: Spontaneous
  Country: US (occurrence: US)
  Receive Date: 20200430
  Receipt Date: 20200528
  Transmission Date: 20200714
  Serious: No
  Sender: FDA-Public Use
  Company Number: US-APOTEX-2020AP010428

PATIENT
  Sex: Female

DRUGS (4)
  1. FLUTICASONE. [Suspect]
     Active Substance: FLUTICASONE
     Indication: PRODUCT USED FOR UNKNOWN INDICATION
     Dosage: 2 DF, BID (TWO SPRAY IN EACH NOSTRIL TWICE A DAILY)
     Route: 045
  2. MULTIVITAMINS                      /00116001/ [Concomitant]
     Active Substance: VITAMINS
     Indication: PRODUCT USED FOR UNKNOWN INDICATION
     Dosage: UNK
     Route: 065
  3. VITAMIN C [Concomitant]
     Active Substance: ASCORBIC ACID
     Indication: PRODUCT USED FOR UNKNOWN INDICATION
     Dosage: UNK
     Route: 065
  4. VIT D [Concomitant]
     Active Substance: VITAMIN D NOS
     Indication: PRODUCT USED FOR UNKNOWN INDICATION
     Dosage: UNK
     Route: 065

REACTIONS (7)
  - Product dose omission [Unknown]
  - Pain [Recovering/Resolving]
  - Swelling [Recovering/Resolving]
  - Back pain [Recovering/Resolving]
  - Musculoskeletal pain [Recovering/Resolving]
  - Extra dose administered [Unknown]
  - Drug withdrawal headache [Unknown]

NARRATIVE: CASE EVENT DATE: 20200521
